FAERS Safety Report 15953323 (Version 4)
Quarter: 2019Q2

REPORT INFORMATION
  Report Type: Spontaneous
  Country: JP (occurrence: JP)
  Receive Date: 20190212
  Receipt Date: 20190404
  Transmission Date: 20190711
  Serious: Yes (Hospitalization)
  Sender: FDA-Public Use
  Company Number: PHJP2019JP001777

PATIENT
  Age: 40 Year
  Sex: Male

DRUGS (11)
  1. COSENTYX [Suspect]
     Active Substance: SECUKINUMAB
     Indication: PSORIASIS
     Dosage: 300 MG, QW
     Route: 058
     Dates: start: 20161117, end: 20171215
  2. COSENTYX [Suspect]
     Active Substance: SECUKINUMAB
     Dosage: 300 MG, 4W
     Route: 058
  3. COSENTYX [Suspect]
     Active Substance: SECUKINUMAB
     Dosage: 300 MG, 4W
     Route: 058
     Dates: end: 20190129
  4. NEORAL [Suspect]
     Active Substance: CYCLOSPORINE
     Indication: PSORIASIS
     Dosage: 100-150 MG, QD
     Route: 048
     Dates: start: 20131212, end: 20161114
  5. DOVOBET [Concomitant]
     Active Substance: BETAMETHASONE\CALCIPOTRIENE
     Dosage: 15 G, QD
     Route: 061
     Dates: start: 201802
  6. ACUATIM [Concomitant]
     Active Substance: NADIFLOXACIN
     Indication: FOLLICULITIS
     Dosage: 10 G, BID
     Route: 061
     Dates: start: 20170209
  7. DOVOBET [Concomitant]
     Active Substance: BETAMETHASONE\CALCIPOTRIENE
     Indication: PSORIASIS
     Dosage: 15 G, QD
     Route: 061
     Dates: start: 20141222, end: 201612
  8. ANTEBATE [Concomitant]
     Active Substance: BETAMETHASONE DIPROPIONATE
     Indication: PSORIASIS
     Dosage: 10 G, QD
     Route: 061
     Dates: start: 201312, end: 201612
  9. ISCOTIN [Concomitant]
     Active Substance: ISONIAZID
     Indication: TUBERCULIN TEST POSITIVE
     Dosage: 100 MG, TID
     Route: 048
     Dates: start: 20161027, end: 201708
  10. HIRUDOID [Concomitant]
     Active Substance: GLYCOSAMINOGLYCANS
     Indication: ASTEATOSIS
     Dosage: 50 G, BID
     Route: 061
     Dates: start: 20160108
  11. DOVONEX [Concomitant]
     Active Substance: CALCIPOTRIENE
     Indication: PSORIASIS
     Dosage: 10 G, ONCE OR TWICE
     Route: 061
     Dates: start: 20141208, end: 201612

REACTIONS (1)
  - Angiocentric lymphoma [Unknown]

NARRATIVE: CASE EVENT DATE: 20190129
